FAERS Safety Report 6306136-2 (Version None)
Quarter: 2009Q3

REPORT INFORMATION
  Report Type: 
  Country: None (occurrence: None)
  Receive Date: 20090812
  Receipt Date: 20090810
  Transmission Date: 20100115
  Serious: Yes (Hospitalization, Other)
  Sender: FDA-Public Use
  Company Number: PL-ROXANE LABORATORIES, INC.-2009-RO-00803RO

PATIENT
  Age: 16 Year
  Sex: Female

DRUGS (5)
  1. TOPIRAMATE [Suspect]
     Indication: EPILEPSY
     Dosage: 300 MG
  2. TOPIRAMATE [Suspect]
  3. BICARBONATE [Concomitant]
     Indication: METABOLIC ACIDOSIS
     Dosage: 210 MEQ
  4. BICARBONATE [Concomitant]
     Dosage: 120 MEQ
  5. BICARBONATE [Concomitant]
     Dosage: 80 MEQ

REACTIONS (5)
  - AGITATION [None]
  - CONFUSIONAL STATE [None]
  - INTENTIONAL OVERDOSE [None]
  - METABOLIC ACIDOSIS [None]
  - PUPILLARY REFLEX IMPAIRED [None]
